FAERS Safety Report 23229194 (Version 1)
Quarter: 2023Q4

REPORT INFORMATION
  Report Type: Spontaneous
  Country: None (occurrence: CH)
  Receive Date: 20231127
  Receipt Date: 20231127
  Transmission Date: 20240110
  Serious: Yes (Hospitalization, Other)
  Sender: FDA-Public Use
  Company Number: CH-Hisun Pharmaceuticals-2148706

PATIENT
  Age: 66 Year
  Sex: Male

DRUGS (6)
  1. IRBESARTAN [Suspect]
     Active Substance: IRBESARTAN
     Indication: Product used for unknown indication
  2. ASPIRIN [Suspect]
     Active Substance: ASPIRIN
  3. ATORVASTATIN [Suspect]
     Active Substance: ATORVASTATIN
  4. METOPROLOL [Suspect]
     Active Substance: METOPROLOL
  5. AMLODIPINE [Suspect]
     Active Substance: AMLODIPINE BESYLATE
  6. NITROGLYCERIN [Suspect]
     Active Substance: NITROGLYCERIN
     Route: 062

REACTIONS (3)
  - Pulmonary oedema [Unknown]
  - Hypertension [Recovering/Resolving]
  - Acute kidney injury [Unknown]
